FAERS Safety Report 4455619-9 (Version None)
Quarter: 2004Q3

REPORT INFORMATION
  Report Type: 
  Country: None (occurrence: None)
  Receive Date: 20040917
  Receipt Date: 20040901
  Transmission Date: 20050211
  Serious: Yes (Other)
  Sender: FDA-Public Use
  Company Number: USA040977179

PATIENT
  Sex: Female

DRUGS (1)
  1. EVISTA [Suspect]

REACTIONS (7)
  - CONDITION AGGRAVATED [None]
  - DIABETES MELLITUS [None]
  - DIFFICULTY IN WALKING [None]
  - DYSSTASIA [None]
  - IMMUNOSUPPRESSION [None]
  - INFECTION [None]
  - INTERVERTEBRAL DISC DISORDER [None]
